FAERS Safety Report 23957602 (Version 1)
Quarter: 2024Q2

REPORT INFORMATION
  Report Type: Spontaneous
  Country: CN (occurrence: CN)
  Receive Date: 20240610
  Receipt Date: 20240610
  Transmission Date: 20240716
  Serious: Yes (Hospitalization, Disabling)
  Sender: FDA-Public Use
  Company Number: CN-WOODWARD-2024-CN-000204

PATIENT
  Age: 59 Year
  Sex: Female

DRUGS (4)
  1. RABEPRAZOLE SODIUM [Suspect]
     Active Substance: RABEPRAZOLE SODIUM
     Indication: Helicobacter infection
     Dosage: 20.0 MILLIGRAM(S) (10 MILLIGRAM(S), 1 IN 12 HOUR)
     Route: 048
     Dates: start: 20240503, end: 20240507
  2. FURAZOLIDONE [Suspect]
     Active Substance: FURAZOLIDONE
     Dosage: 0.2 GRAM(S) (0.1 GRAM(S), 1 IN 12 HOUR)
     Route: 048
     Dates: start: 20240503, end: 20240507
  3. BISMUTH [Suspect]
     Active Substance: BISMUTH
     Dosage: 0.2 GRAM(S) (0.1 GRAM(S), 1 IN 12 HOUR)
     Route: 048
     Dates: start: 20240503, end: 20240507
  4. AMOXICILLIN [Suspect]
     Active Substance: AMOXICILLIN
     Dosage: 2.0 GRAM(S) (1 GRAM(S), 1 IN 12 HOUR)
     Route: 048
     Dates: start: 20240503, end: 20240507

REACTIONS (2)
  - Pyrexia [Recovered/Resolved]
  - Hepatic function abnormal [Recovered/Resolved with Sequelae]

NARRATIVE: CASE EVENT DATE: 20240504
